FAERS Safety Report 14277277 (Version 3)
Quarter: 2017Q4

REPORT INFORMATION
  Report Type: Report from Study
  Country: None (occurrence: IL)
  Receive Date: 20171212
  Receipt Date: 20171221
  Transmission Date: 20180321
  Serious: Yes (Life-Threatening, Hospitalization, Other)
  Sender: FDA-Public Use
  Company Number: IL-ABBVIE-17K-082-1997250-00

PATIENT
  Age: 65 Year
  Sex: Female

DRUGS (10)
  1. DUODOPA [Suspect]
     Active Substance: CARBIDOPA\LEVODOPA
     Dosage: MORNING DOSE:5.0ML. CONTINUES RATE:2.0ML/HOUR. ED:1.0ML.
     Route: 050
     Dates: start: 2017, end: 2017
  2. DUODOPA [Suspect]
     Active Substance: CARBIDOPA\LEVODOPA
     Dosage: MORNING DOSE 7.0ML,?CONTINUOUS DOSE 2.4ML/HOUR,?EXTRA DOSE 1.0ML.
     Route: 050
  3. DUODOPA [Suspect]
     Active Substance: CARBIDOPA\LEVODOPA
     Indication: PARKINSON^S DISEASE
     Dosage: MORNING DOSE:9.5ML. CONTINUOUS RATE:3.0ML/HOUR.
     Route: 050
     Dates: start: 20170528, end: 201705
  4. DUODOPA [Suspect]
     Active Substance: CARBIDOPA\LEVODOPA
     Dosage: EXTRA DOSE OF 2.0ML, MORNING DOSE WAS DECREASED FROM 12.5 ML TO 10.5 ML
     Route: 050
     Dates: start: 2017, end: 2017
  5. DUODOPA [Suspect]
     Active Substance: CARBIDOPA\LEVODOPA
     Dosage: EXTRA DOSE OF 2.0ML, MORNING DOSE WAS INCREASED FROM 9.5ML TO 12.5ML
     Route: 050
     Dates: start: 201705, end: 2017
  6. DUODOPA [Suspect]
     Active Substance: CARBIDOPA\LEVODOPA
     Dosage: MORNING DOSE:5.0ML. CONTINUES RATE:2.1ML/HOUR. ED:1.0ML.
     Route: 050
     Dates: start: 2017, end: 2017
  7. DUODOPA [Suspect]
     Active Substance: CARBIDOPA\LEVODOPA
     Dosage: CURRENT MORNING DOSE 7.0ML CURRENT CONTINUOUS DOSE 2.4ML/HOUR
     Route: 050
     Dates: start: 2017
  8. DUODOPA [Suspect]
     Active Substance: CARBIDOPA\LEVODOPA
     Dosage: MORNING DOSE 8.0ML,?CONTINUOUS DOSE 2.6ML/HOUR,?EXTRA DOSE 1.2ML.
     Route: 050
  9. LEPONEX [Suspect]
     Active Substance: CLOZAPINE
     Route: 065
  10. LEPONEX [Suspect]
     Active Substance: CLOZAPINE
     Indication: PRODUCT USED FOR UNKNOWN INDICATION
     Route: 065

REACTIONS (21)
  - Apathy [Recovering/Resolving]
  - Gait disturbance [Unknown]
  - Hallucination [Unknown]
  - Somnolence [Unknown]
  - Dysphagia [Unknown]
  - Tremor [Unknown]
  - Musculoskeletal stiffness [Unknown]
  - Confusional state [Recovering/Resolving]
  - Seizure [Unknown]
  - Stoma site odour [Unknown]
  - Fall [Unknown]
  - Vomiting [Unknown]
  - Intentional dose omission [Unknown]
  - Mental impairment [Unknown]
  - Dementia [Unknown]
  - Asthenia [Recovering/Resolving]
  - Loss of consciousness [Recovered/Resolved]
  - Stoma site discharge [Unknown]
  - Device issue [Unknown]
  - Cognitive disorder [Unknown]
  - Somnolence [Unknown]

NARRATIVE: CASE EVENT DATE: 2017
